FAERS Safety Report 9274470 (Version 1)
Quarter: 2013Q2

REPORT INFORMATION
  Report Type: Spontaneous
  Country: US (occurrence: US)
  Receive Date: 20130507
  Receipt Date: 20130507
  Transmission Date: 20140414
  Serious: No
  Sender: FDA-Public Use
  Company Number: US-009507513-1305USA001971

PATIENT
  Sex: Female

DRUGS (2)
  1. MONTELUKAST SODIUM [Suspect]
     Indication: ASTHMA
     Dosage: UNK
     Route: 048
  2. ATIVAN [Concomitant]
     Dosage: UNK

REACTIONS (10)
  - Homicidal ideation [Unknown]
  - Suicidal ideation [Unknown]
  - Nightmare [Unknown]
  - Anxiety [Unknown]
  - Depression [Unknown]
  - Drug ineffective [Unknown]
  - Abdominal discomfort [Unknown]
  - Fatigue [Unknown]
  - Restlessness [Unknown]
  - Fatigue [Unknown]
